FAERS Safety Report 8547739-4 (Version None)
Quarter: 2012Q3

REPORT INFORMATION
  Report Type: 
  Country: None (occurrence: None)
  Receive Date: 20120727
  Receipt Date: 20120504
  Transmission Date: 20120928
  Serious: No
  Sender: FDA-Public Use
  Company Number: US-ASTRAZENECA-2012SE29169

PATIENT
  Age: 41 Year
  Sex: Female
  Weight: 86.2 kg

DRUGS (10)
  1. SEROQUEL XR [Suspect]
     Indication: TACHYPHRENIA
     Route: 048
     Dates: start: 20120403
  2. CELEXA [Concomitant]
  3. SEROQUEL XR [Suspect]
     Route: 048
     Dates: start: 20120405
  4. SEROQUEL XR [Suspect]
     Route: 048
  5. CELEXA [Concomitant]
  6. SEROQUEL XR [Suspect]
     Dosage: 50 MILLIGARMS, ONE TABLET AT MORNING, ONE TABLET AT NIGHT.
     Route: 048
     Dates: start: 20120406
  7. WELLBUTRIN [Concomitant]
  8. SEROQUEL XR [Suspect]
     Dosage: 50 MILLIGRAMS, ONE AND A HALF TABLET AT NIGHT.
     Route: 048
     Dates: start: 20120404
  9. ELAVIL [Concomitant]
  10. RISPERDAL [Concomitant]

REACTIONS (4)
  - OFF LABEL USE [None]
  - CONSTIPATION [None]
  - DRUG INEFFECTIVE [None]
  - FAECES HARD [None]
